FAERS Safety Report 4659574-8 (Version None)
Quarter: 2005Q2

REPORT INFORMATION
  Report Type: 
  Country: None (occurrence: None)
  Receive Date: 20050511
  Receipt Date: 20050426
  Transmission Date: 20051028
  Serious: Yes (Hospitalization)
  Sender: FDA-Public Use
  Company Number: US-MERCK-0504USA04557

PATIENT
  Age: 40 Year
  Sex: Male
  Weight: 58 kg

DRUGS (11)
  1. CANCIDAS [Suspect]
     Indication: OESOPHAGEAL CANDIDIASIS
     Route: 042
  2. CANCIDAS [Suspect]
     Route: 042
  3. CANCIDAS [Suspect]
     Route: 042
  4. CANCIDAS [Suspect]
     Indication: ORAL CANDIDIASIS
     Route: 042
  5. CANCIDAS [Suspect]
     Route: 042
  6. CANCIDAS [Suspect]
     Route: 042
  7. [THERAPY UNSPECIFIED] [Concomitant]
     Route: 065
  8. FLUCONAZOLE [Concomitant]
     Indication: OESOPHAGEAL CANDIDIASIS
     Route: 065
  9. FLUCONAZOLE [Concomitant]
     Indication: ORAL CANDIDIASIS
     Route: 065
  10. ITRACONAZOLE [Concomitant]
     Indication: OESOPHAGEAL CANDIDIASIS
     Route: 065
  11. ITRACONAZOLE [Concomitant]
     Indication: ORAL CANDIDIASIS
     Route: 065

REACTIONS (3)
  - ASPERGILLOMA [None]
  - DRUG INEFFECTIVE [None]
  - THERAPY NON-RESPONDER [None]
